FAERS Safety Report 6765494-5 (Version None)
Quarter: 2010Q2

REPORT INFORMATION
  Report Type: 
  Country: None (occurrence: None)
  Receive Date: 20100609
  Receipt Date: 20100525
  Transmission Date: 20101027
  Serious: Yes (Death)
  Sender: FDA-Public Use
  Company Number: 2010-012

PATIENT
  Age: 39 Year
  Sex: Male

DRUGS (13)
  1. FAZACLO ODT [Suspect]
     Indication: BIPOLAR I DISORDER
     Dosage: 25MG DAILY, PO
     Route: 048
     Dates: start: 20090709, end: 20091219
  2. ALLEGRA [Concomitant]
  3. NASONEX [Concomitant]
  4. ADVAIR DISKUS 100/50 [Concomitant]
  5. LISINOPRIL [Concomitant]
  6. MEVACOR [Concomitant]
  7. LOPRESSOR [Concomitant]
  8. PRILOSEC [Concomitant]
  9. METFORMIN [Concomitant]
  10. DEPAKOTE [Concomitant]
  11. LUVOX [Concomitant]
  12. VENTOLIN HFA [Concomitant]
  13. HYDROCHLOROTHIAZIDE [Concomitant]

REACTIONS (1)
  - RESPIRATORY ARREST [None]
